FAERS Safety Report 19380883 (Version 3)
Quarter: 2022Q3

REPORT INFORMATION
  Report Type: Spontaneous
  Country: JP (occurrence: JP)
  Receive Date: 20210607
  Receipt Date: 20220714
  Transmission Date: 20221027
  Serious: Yes (Hospitalization, Other)
  Sender: FDA-Public Use
  Company Number: JP-GSKNCCC-CASE-01226893_AE-45262

PATIENT

DRUGS (2)
  1. ZOVIRAX [Suspect]
     Active Substance: ACYCLOVIR
     Indication: Herpes zoster
     Dosage: 800 MG, BID, NOON AND NIGHT
     Dates: start: 20210531
  2. ZOVIRAX [Suspect]
     Active Substance: ACYCLOVIR
     Dosage: 800 MG, QD, MORNING
     Dates: start: 20210601

REACTIONS (4)
  - Altered state of consciousness [Recovered/Resolved]
  - Toxic encephalopathy [Unknown]
  - Injury [Unknown]
  - Fall [Unknown]

NARRATIVE: CASE EVENT DATE: 20210601
